FAERS Safety Report 6848770-7 (Version None)
Quarter: 2010Q3

REPORT INFORMATION
  Report Type: 
  Country: None (occurrence: None)
  Receive Date: 20100716
  Receipt Date: 20070909
  Transmission Date: 20110219
  Serious: No
  Sender: FDA-Public Use
  Company Number: US-PFIZER INC-2007075614

PATIENT
  Sex: Male
  Weight: 67.1 kg

DRUGS (3)
  1. CHANTIX [Suspect]
     Indication: SMOKING CESSATION THERAPY
     Dates: start: 20070831
  2. ATENOLOL [Concomitant]
     Indication: BLOOD PRESSURE
  3. WARFARIN SODIUM [Concomitant]
     Indication: HEART RATE IRREGULAR

REACTIONS (3)
  - CONSTIPATION [None]
  - HEADACHE [None]
  - SOMNOLENCE [None]
